FAERS Safety Report 8923573 (Version 1)
Quarter: 2012Q4

REPORT INFORMATION
  Report Type: 
  Country: DE (occurrence: DE)
  Receive Date: 20121123
  Receipt Date: 20121123
  Transmission Date: 20130627
  Serious: Yes (Other)
  Sender: FDA-Public Use
  Company Number: PHHY2012DE106529

PATIENT
  Sex: Male

DRUGS (2)
  1. SANDIMMUN [Suspect]
     Indication: PROPHYLAXIS AGAINST TRANSPLANT REJECTION
     Dosage: 70 mg, BID
     Route: 048
     Dates: start: 2005
  2. SANDIMMUN [Suspect]
     Indication: RENAL TRANSPLANT
     Dosage: 50 mg, BID
     Route: 048

REACTIONS (3)
  - Muscle atrophy [Not Recovered/Not Resolved]
  - Vocal cord paralysis [Not Recovered/Not Resolved]
  - Polyneuropathy [Not Recovered/Not Resolved]
